FAERS Safety Report 25236195 (Version 1)
Quarter: 2025Q2

REPORT INFORMATION
  Report Type: Spontaneous
  Country: CN (occurrence: CN)
  Receive Date: 20250424
  Receipt Date: 20250424
  Transmission Date: 20250716
  Serious: Yes (Hospitalization, Other)
  Sender: PFIZER
  Company Number: CN-PFIZER INC-PV202500047558

PATIENT
  Age: 62 Year
  Sex: Female
  Weight: 70 kg

DRUGS (4)
  1. EPIRUBICIN [Suspect]
     Active Substance: EPIRUBICIN
     Indication: Breast cancer
     Dosage: 120 MG, 1X/DAY (D1)
     Route: 041
     Dates: start: 20250318, end: 20250318
  2. EPIRUBICIN [Suspect]
     Active Substance: EPIRUBICIN
     Dosage: 120 MG, 1X/DAY (D1)
     Dates: start: 20250415, end: 20250415
  3. CYCLOPHOSPHAMIDE [Suspect]
     Active Substance: CYCLOPHOSPHAMIDE
     Indication: Breast cancer
     Dosage: 0.8 G, 1X/DAY (D1)
     Route: 041
     Dates: start: 20250318, end: 20250318
  4. CYCLOPHOSPHAMIDE [Suspect]
     Active Substance: CYCLOPHOSPHAMIDE
     Dosage: 0.8 G, 1X/DAY (D1)
     Dates: start: 20250415, end: 20250415

REACTIONS (1)
  - Hepatic failure [Recovering/Resolving]

NARRATIVE: CASE EVENT DATE: 20250407
